FAERS Safety Report 5254115-9 (Version None)
Quarter: 2007Q1

REPORT INFORMATION
  Report Type: 
  Country: None (occurrence: None)
  Receive Date: 20070302
  Receipt Date: 20070216
  Transmission Date: 20070707
  Serious: Yes (Hospitalization)
  Sender: FDA-Public Use
  Company Number: 2007GB00358

PATIENT
  Age: 18421 Day
  Sex: Female

DRUGS (5)
  1. BUDESONIDE [Suspect]
     Indication: MALIGNANT MELANOMA
     Route: 048
     Dates: start: 20061107
  2. IPILIMUMAB [Suspect]
     Indication: MALIGNANT MELANOMA
     Dosage: THREE COURSES
     Route: 042
     Dates: start: 20061107, end: 20070109
  3. ZOPICLONE [Concomitant]
  4. NOZINAN [Concomitant]
     Dates: start: 20061201
  5. ORAMORPH SR [Concomitant]
     Dates: start: 20061201, end: 20070102

REACTIONS (5)
  - BREAST PAIN [None]
  - CONSTIPATION [None]
  - LETHARGY [None]
  - NAUSEA [None]
  - VOMITING [None]
